FAERS Safety Report 5301977-2 (Version None)
Quarter: 2007Q2

REPORT INFORMATION
  Report Type: 
  Country: None (occurrence: None)
  Receive Date: 20070419
  Receipt Date: 20070412
  Transmission Date: 20071010
  Serious: Yes (Hospitalization)
  Sender: FDA-Public Use
  Company Number: CO-AVENTIS-200712860GDDC

PATIENT
  Age: 59 Year
  Sex: Female
  Weight: 68.8 kg

DRUGS (8)
  1. LANTUS [Suspect]
     Indication: DIABETES MELLITUS
     Dosage: DOSE QUANTITY: 10
     Dates: start: 20060501
  2. INHALED HUMAN INSULIN [Suspect]
     Indication: DIABETES MELLITUS
     Dosage: DOSE QUANTITY: 18
     Dates: start: 20060922
  3. UNKNOWN DRUG [Suspect]
  4. ENAPRIL [Concomitant]
     Indication: HYPERTENSION
     Dosage: DOSE: UNK
  5. BECLOMETHASONE DIPROPIONATE [Concomitant]
     Indication: ASTHMA
     Dosage: DOSE: UNK
  6. SALBUTAMOL [Concomitant]
     Indication: ASTHMA
     Dosage: DOSE: UNK
  7. IPRATROPIUM BROMIDE [Concomitant]
     Indication: ASTHMA
     Dosage: DOSE: UNK
  8. TIOTROPIUM [Concomitant]
     Indication: ASTHMA
     Dosage: DOSE: UNK

REACTIONS (1)
  - MYOCARDIAL INFARCTION [None]
